FAERS Safety Report 13737247 (Version 1)
Quarter: 2017Q3

REPORT INFORMATION
  Report Type: Spontaneous
  Country: US (occurrence: US)
  Receive Date: 20170710
  Receipt Date: 20170710
  Transmission Date: 20171127
  Serious: Yes (Other)
  Sender: FDA-Public Use
  Company Number: US-SAOL THERAPEUTICS-2016SAO00097

PATIENT
  Sex: Female

DRUGS (3)
  1. BACLOFEN. [Suspect]
     Active Substance: BACLOFEN
     Indication: SPINAL PAIN
     Dosage: 3.6 UNK, UNK
     Route: 037
  2. MORPHINE [Suspect]
     Active Substance: MORPHINE
     Dosage: 8.3 UNK, UNK
     Route: 037
  3. BUPIVACAINE. [Suspect]
     Active Substance: BUPIVACAINE
     Dosage: 6.7 UNK, UNK
     Route: 037
     Dates: start: 201512

REACTIONS (6)
  - Withdrawal syndrome [Recovered/Resolved]
  - Overdose [Recovered/Resolved]
  - Somnolence [Unknown]
  - Fatigue [Unknown]
  - Muscle twitching [Recovered/Resolved]
  - Abnormal sleep-related event [Recovered/Resolved]

NARRATIVE: CASE EVENT DATE: 2015
